FAERS Safety Report 9261329 (Version 1)
Quarter: 2013Q2

REPORT INFORMATION
  Report Type: Spontaneous
  Country: GB (occurrence: GB)
  Receive Date: 20130429
  Receipt Date: 20130429
  Transmission Date: 20140414
  Serious: Yes (Life-Threatening, Hospitalization)
  Sender: FDA-Public Use
  Company Number: GB-GLAXOSMITHKLINE-B0885847A

PATIENT
  Age: 8 Year
  Sex: Male

DRUGS (5)
  1. FLIXOTIDE [Suspect]
     Indication: ASTHMA
     Dosage: 4IUAX PER DAY
     Route: 055
  2. SULTHIAME [Suspect]
     Indication: NERVOUS SYSTEM DISORDER
     Route: 048
  3. BRICANYL [Concomitant]
  4. SODIUM VALPROATE [Concomitant]
  5. SEREVENT [Concomitant]

REACTIONS (9)
  - Growth retardation [Not Recovered/Not Resolved]
  - Adrenal suppression [Unknown]
  - Hypoglycaemia [Unknown]
  - Weight increased [Recovering/Resolving]
  - Aggression [Unknown]
  - Sleep disorder [Unknown]
  - Affective disorder [Unknown]
  - Abnormal behaviour [Unknown]
  - Memory impairment [Unknown]
